FAERS Safety Report 4429980-5 (Version None)
Quarter: 2004Q3

REPORT INFORMATION
  Report Type: 
  Country: None (occurrence: None)
  Receive Date: 20040817
  Receipt Date: 20040803
  Transmission Date: 20050211
  Serious: No
  Sender: FDA-Public Use
  Company Number: 04H-163-0269272-00

PATIENT

DRUGS (1)
  1. DOBUTAMINE HCL [Suspect]
     Indication: CARDIAC STRESS TEST
     Dosage: 10 MCG/KG/MIN, INCREAS.EVERY 3 MIN. TO MAX. 40 MCG/KG/MIN, INTRAVENOUS  (THERAPY DATES: SEE IMAGE)
     Route: 042

REACTIONS (1)
  - ATRIAL FIBRILLATION [None]
